FAERS Safety Report 10748439 (Version 1)
Quarter: 2015Q1

REPORT INFORMATION
  Report Type: Spontaneous
  Country: US (occurrence: None)
  Receive Date: 20150120
  Receipt Date: 20150120
  Transmission Date: 20150721
  Serious: No
  Sender: FDA-Public Use
  Company Number: AEGR000968

PATIENT
  Age: 78 Year
  Sex: Female
  Weight: 66.7 kg

DRUGS (15)
  1. VITAMIN E [Concomitant]
     Active Substance: .ALPHA.-TOCOPHEROL
  2. ALBUTEROL. [Concomitant]
     Active Substance: ALBUTEROL
  3. OMEPRAZOLE. [Concomitant]
     Active Substance: OMEPRAZOLE
  4. ROUVASTATIN [Concomitant]
  5. ALPRAZOLAM. [Concomitant]
     Active Substance: ALPRAZOLAM
  6. FERROUS SULFATE [Concomitant]
     Active Substance: FERROUS SULFATE\FERROUS SULFATE, DRIED
  7. NITROGLYCERINE (GLYCERYL TRINITRATE) [Concomitant]
  8. JUXTAPID [Suspect]
     Active Substance: LOMITAPIDE MESYLATE
     Indication: TYPE IIA HYPERLIPIDAEMIA
     Route: 048
     Dates: start: 20130827, end: 20131030
  9. IBUPROFEN. [Concomitant]
     Active Substance: IBUPROFEN
  10. LISINOPRIL. [Concomitant]
     Active Substance: LISINOPRIL
  11. OMEGA 3 (FISH OIL) [Concomitant]
     Active Substance: OMEGA-3 FATTY ACIDS
  12. SPIRIVA (TIOTROPIUM BROMIDE) [Concomitant]
  13. EZETIMIBE. [Concomitant]
     Active Substance: EZETIMIBE
  14. AMLODIPINE [Concomitant]
     Active Substance: AMLODIPINE BESYLATE
  15. FOLIC ACID. [Concomitant]
     Active Substance: FOLIC ACID

REACTIONS (1)
  - Osteoarthritis [None]

NARRATIVE: CASE EVENT DATE: 20140204
